FAERS Safety Report 4287693-7 (Version None)
Quarter: 2004Q1

REPORT INFORMATION
  Report Type: 
  Country: None (occurrence: None)
  Receive Date: 20040209
  Receipt Date: 20030829
  Transmission Date: 20041129
  Serious: No
  Sender: FDA-Public Use
  Company Number: US-GLAXOSMITHKLINE-A0424129A

PATIENT
  Age: 40 Year
  Sex: Female

DRUGS (3)
  1. PAXIL [Suspect]
     Indication: OBSESSIVE-COMPULSIVE DISORDER
     Dosage: 35MG PER DAY
     Route: 048
     Dates: start: 20020101, end: 20030101
  2. PAXIL [Suspect]
     Dosage: 20MG PER DAY
     Route: 048
     Dates: start: 20030801
  3. BIRTH CONTROL PILLS [Concomitant]

REACTIONS (3)
  - APATHY [None]
  - CHEST DISCOMFORT [None]
  - DISSOCIATION [None]
